FAERS Safety Report 23126775 (Version 2)
Quarter: 2023Q4

REPORT INFORMATION
  Report Type: Other
  Country: US (occurrence: None)
  Receive Date: 20231030
  Receipt Date: 20231213
  Transmission Date: 20240110
  Serious: Yes (Hospitalization)
  Sender: FDA-Public Use
  Company Number: US-ROCHE-3419753

PATIENT
  Age: 54 Year
  Sex: Female
  Weight: 71.278 kg

DRUGS (9)
  1. OCREVUS [Suspect]
     Active Substance: OCRELIZUMAB
     Indication: Primary progressive multiple sclerosis
     Dosage: DATE OF TREATMENT: 27/FEB/2023, 23/FEB/2022, 23/AUG/2022, 18/AUG/2021, 21/JAN/2021
     Route: 042
  2. GABAPENTIN [Concomitant]
     Active Substance: GABAPENTIN
     Indication: Pain in extremity
     Dosage: ORAL TABLET
  3. BUSPIRONE [Concomitant]
     Active Substance: BUSPIRONE HYDROCHLORIDE
     Indication: Anxiety
     Dosage: 10 MG TWICE A DAY ORAL TABLET
  4. LISINOPRIL [Concomitant]
     Active Substance: LISINOPRIL
     Dosage: 10 MG ONCE A DAY ORAL TABLET
  5. FLUOXETINE [Concomitant]
     Active Substance: FLUOXETINE HYDROCHLORIDE
     Indication: Depression
     Dosage: 40 MG TWICE A DAY ORAL TABLET
  6. VITAMIN D2 [Concomitant]
     Active Substance: ERGOCALCIFEROL
     Dosage: 50000 UL ONCE A WEEK ORAL TABLET
  7. JARDIANCE [Concomitant]
     Active Substance: EMPAGLIFLOZIN
     Indication: Diabetes mellitus
     Dosage: 25 MG ONCE A DAY ORAL TABLET
  8. OZEMPIC [Concomitant]
     Active Substance: SEMAGLUTIDE
     Indication: Diabetes mellitus
     Dosage: 0.25 MG ONCE A WEEK SUBCUTANEOUS INJECTION
  9. SIMVASTAN [Concomitant]
     Dosage: 10 MG ONCE A DAY ORAL TABLET

REACTIONS (3)
  - Eye infection [Unknown]
  - Illness [Unknown]
  - Bacterial infection [Unknown]

NARRATIVE: CASE EVENT DATE: 20230101
